FAERS Safety Report 24246520 (Version 1)
Quarter: 2024Q3

REPORT INFORMATION
  Report Type: Spontaneous
  Country: US (occurrence: US)
  Receive Date: 20240825
  Receipt Date: 20240825
  Transmission Date: 20241016
  Serious: No
  Sender: AMGEN
  Company Number: US-AMGEN-USASP2024166479

PATIENT

DRUGS (2)
  1. KRYSTEXXA [Suspect]
     Active Substance: PEGLOTICASE
     Indication: Product used for unknown indication
     Dosage: UNK
     Route: 042
  2. KRYSTEXXA [Suspect]
     Active Substance: PEGLOTICASE
     Dosage: UNK, LAST INFUSION
     Route: 042
     Dates: start: 20240728, end: 20240728

REACTIONS (1)
  - Blood uric acid increased [Unknown]
